FAERS Safety Report 7572715-8 (Version None)
Quarter: 2011Q2

REPORT INFORMATION
  Report Type: 
  Country: None (occurrence: None)
  Receive Date: 20110627
  Receipt Date: 20110615
  Transmission Date: 20111010
  Serious: Yes (Death)
  Sender: FDA-Public Use
  Company Number: US-CELGENEUS-163-21660-11052999

PATIENT
  Sex: Male

DRUGS (1)
  1. ABRAXANE [Suspect]
     Indication: BLADDER CANCER
     Route: 051

REACTIONS (1)
  - METASTATIC CARCINOMA OF THE BLADDER [None]
